FAERS Safety Report 8020002-6 (Version None)
Quarter: 2012Q1

REPORT INFORMATION
  Report Type: 
  Country: None (occurrence: None)
  Receive Date: 20120103
  Receipt Date: 20111223
  Transmission Date: 20120608
  Serious: Yes (Hospitalization)
  Sender: FDA-Public Use
  Company Number: PHHO2011IL021447

PATIENT
  Sex: Male

DRUGS (5)
  1. DIOVAN [Suspect]
  2. SPIRONOLACTONE [Suspect]
  3. SAXAGLIPTIN [Concomitant]
  4. GLUCO-RITE [Concomitant]
  5. FUROSEMIDE [Suspect]

REACTIONS (3)
  - CARDIAC FAILURE CONGESTIVE [None]
  - RENAL FAILURE ACUTE [None]
  - HYPERKALAEMIA [None]
